FAERS Safety Report 15249431 (Version 1)
Quarter: 2018Q3

REPORT INFORMATION
  Report Type: Spontaneous
  Country: US (occurrence: US)
  Receive Date: 20180807
  Receipt Date: 20180807
  Transmission Date: 20181010
  Serious: No
  Sender: FDA-Public Use
  Company Number: US-PERRIGO-18US002271

PATIENT
  Age: 20 Year
  Sex: Female
  Weight: 93.42 kg

DRUGS (2)
  1. LORATADINE. [Suspect]
     Active Substance: LORATADINE
     Indication: HYPERSENSITIVITY
     Dosage: 10 MG, SINGLE
     Route: 048
     Dates: start: 20180215, end: 20180215
  2. MELATONIN [Concomitant]
     Active Substance: MELATONIN
     Indication: PRODUCT USED FOR UNKNOWN INDICATION
     Dosage: UNK
     Route: 065
     Dates: start: 201802

REACTIONS (5)
  - Hypophagia [Recovered/Resolved]
  - Feeling abnormal [Recovered/Resolved]
  - Mental impairment [Recovered/Resolved]
  - Dissociation [Recovered/Resolved]
  - Depressed mood [Recovered/Resolved]

NARRATIVE: CASE EVENT DATE: 20180215
